FAERS Safety Report 23737137 (Version 1)
Quarter: 2024Q2

REPORT INFORMATION
  Report Type: Spontaneous
  Country: RO (occurrence: RO)
  Receive Date: 20240412
  Receipt Date: 20240412
  Transmission Date: 20240716
  Serious: Yes (Other)
  Sender: FDA-Public Use
  Company Number: None

PATIENT
  Age: 64 Year
  Sex: Female
  Weight: 69 kg

DRUGS (1)
  1. BROLUCIZUMAB [Suspect]
     Active Substance: BROLUCIZUMAB
     Indication: Age-related macular degeneration
     Dosage: 0.05 ML (INJECTABLE INTRAVITREAL)
     Route: 031
     Dates: start: 20240124, end: 20240129

REACTIONS (6)
  - Eye irritation [Not Recovered/Not Resolved]
  - Blindness [Recovered/Resolved]
  - Eye pain [Recovered/Resolved]
  - Visual acuity reduced [Not Recovered/Not Resolved]
  - Ocular hyperaemia [Recovered/Resolved]
  - Uveitis [Not Recovered/Not Resolved]

NARRATIVE: CASE EVENT DATE: 20240128
